FAERS Safety Report 14937251 (Version 1)
Quarter: 2018Q2

REPORT INFORMATION
  Report Type: Spontaneous
  Country: US (occurrence: US)
  Receive Date: 20180525
  Receipt Date: 20180525
  Transmission Date: 20180711
  Serious: No
  Sender: FDA-Public Use
  Company Number: US-CIPLA LTD.-2017US06918

PATIENT

DRUGS (13)
  1. IBUPROFEN. [Suspect]
     Active Substance: IBUPROFEN
     Indication: TENDON PAIN
     Dosage: 250 MG, TID, ON DAYS OF WORK
     Route: 065
  2. HYALURONIC ACID [Suspect]
     Active Substance: HYALURONIC ACID
     Indication: TENDON PAIN
     Dosage: 60 MG, UNK
     Route: 065
  3. IRBESARTAN. [Concomitant]
     Active Substance: IRBESARTAN
     Indication: BLOOD PRESSURE INCREASED
     Dosage: 150 MG, BID
     Route: 065
  4. SPIRONOLACTONE. [Concomitant]
     Active Substance: SPIRONOLACTONE
     Indication: DIURETIC THERAPY
     Dosage: UNK
     Route: 065
  5. VITAMIN D3 [Concomitant]
     Active Substance: CHOLECALCIFEROL
     Indication: SUPPLEMENTATION THERAPY
     Dosage: 5000 IU, PER DAY
     Route: 065
  6. AZITHROMYCIN ANHYDROUS. [Concomitant]
     Active Substance: AZITHROMYCIN ANHYDROUS
     Indication: LYMPHADENOPATHY
  7. OMEGA-3 ACIDS [Concomitant]
     Active Substance: OMEGA-3 FATTY ACIDS
     Indication: SUPPLEMENTATION THERAPY
     Dosage: UNK
     Route: 065
  8. AZITHROMYCIN ANHYDROUS. [Concomitant]
     Active Substance: AZITHROMYCIN ANHYDROUS
     Indication: OROPHARYNGEAL PAIN
     Dosage: UNK
     Route: 065
  9. LEVOFLOXACIN. [Suspect]
     Active Substance: LEVOFLOXACIN
     Indication: SINUSITIS
     Dosage: 500 MG, UNK
     Route: 065
     Dates: start: 20170312
  10. CEFDINIR. [Concomitant]
     Active Substance: CEFDINIR
     Dosage: UNK UNK, SINGLE
     Route: 065
     Dates: start: 20170307
  11. PARACETAMOL [Suspect]
     Active Substance: ACETAMINOPHEN
     Indication: TENDON PAIN
     Dosage: 500 MG, BID, ON DAYS OF WORK, BUT NOT MORE THAN 6 PER DAY
     Route: 065
  12. SPIRONOLACTONE. [Concomitant]
     Active Substance: SPIRONOLACTONE
     Indication: BLOOD PRESSURE INCREASED
     Dosage: 12.5 MG, BID
     Route: 065
  13. COENZYME Q10 [Concomitant]
     Active Substance: UBIDECARENONE
     Indication: SUPPLEMENTATION THERAPY
     Dosage: 100 MG, PER DAY
     Route: 065

REACTIONS (2)
  - Drug ineffective [Unknown]
  - Tendonitis [Not Recovered/Not Resolved]
